FAERS Safety Report 20432023 (Version 1)
Quarter: 2022Q1

REPORT INFORMATION
  Report Type: Spontaneous
  Country: JP (occurrence: JP)
  Receive Date: 20220204
  Receipt Date: 20220204
  Transmission Date: 20220423
  Serious: Yes (Death)
  Sender: FDA-Public Use
  Company Number: JP-ABBVIE-21K-087-4209001-00

PATIENT
  Age: 19 Year
  Sex: Male

DRUGS (1)
  1. RINVOQ [Suspect]
     Active Substance: UPADACITINIB
     Indication: Graft versus host disease
     Route: 048
     Dates: start: 20200806

REACTIONS (2)
  - Death [Fatal]
  - Off label use [Unknown]
